FAERS Safety Report 23359118 (Version 1)
Quarter: 2024Q1

REPORT INFORMATION
  Report Type: Report from Study
  Country: CA (occurrence: CA)
  Receive Date: 20240102
  Receipt Date: 20240102
  Transmission Date: 20240409
  Serious: Yes (Death, Other)
  Sender: FDA-Public Use
  Company Number: CA-VER-202300539

PATIENT
  Age: 86 Year
  Sex: Male

DRUGS (1)
  1. TRIPTORELIN PAMOATE [Suspect]
     Active Substance: TRIPTORELIN PAMOATE
     Indication: Prostate cancer
     Dosage: 22.5 MILLIGRAM, ONCE / 6 MONTHS (22.5 MG,6 M)
     Route: 030
     Dates: start: 20230713, end: 20230713

REACTIONS (1)
  - Death [Fatal]

NARRATIVE: CASE EVENT DATE: 20231120
